FAERS Safety Report 4295181-7 (Version None)
Quarter: 2004Q1

REPORT INFORMATION
  Report Type: 
  Country: None (occurrence: None)
  Receive Date: 20040212
  Receipt Date: 20040128
  Transmission Date: 20041129
  Serious: Yes (Hospitalization)
  Sender: FDA-Public Use
  Company Number: 189696

PATIENT
  Age: 55 Year
  Sex: Female
  Weight: 57.4 kg

DRUGS (2)
  1. AVONEX [Suspect]
     Indication: MULTIPLE SCLEROSIS
     Dates: end: 20030901
  2. BACLOFEN [Concomitant]

REACTIONS (10)
  - ANAEMIA [None]
  - ASTHENIA [None]
  - CLOSTRIDIAL INFECTION [None]
  - CONGENITAL HERPES SIMPLEX INFECTION [None]
  - CONJUNCTIVITIS [None]
  - DEEP VEIN THROMBOSIS [None]
  - DISEASE RECURRENCE [None]
  - OESOPHAGITIS [None]
  - PARAPARESIS [None]
  - URINARY TRACT INFECTION [None]
